FAERS Safety Report 10936347 (Version 1)
Quarter: 2015Q1

REPORT INFORMATION
  Report Type: Spontaneous
  Country: US (occurrence: None)
  Receive Date: 20150320
  Receipt Date: 20150320
  Transmission Date: 20150721
  Serious: Yes (Life-Threatening)
  Sender: FDA-Public Use
  Company Number: None

PATIENT
  Age: 88 Year
  Sex: Female
  Weight: 67.59 kg

DRUGS (15)
  1. SYNTHROID [Concomitant]
     Active Substance: LEVOTHYROXINE SODIUM
  2. MVI WITH MINERALS [Concomitant]
  3. CALCIUM CARBONATE. [Concomitant]
     Active Substance: CALCIUM CARBONATE
  4. MELATONIN [Concomitant]
     Active Substance: MELATONIN
  5. NORVASC [Concomitant]
     Active Substance: AMLODIPINE BESYLATE
  6. DEPAKOTE [Concomitant]
     Active Substance: DIVALPROEX SODIUM
  7. ASA [Concomitant]
     Active Substance: ASPIRIN
  8. ZYPREXA [Concomitant]
     Active Substance: OLANZAPINE
  9. VITAMIN D [Concomitant]
     Active Substance: CHOLECALCIFEROL
  10. EXELON PATCH [Suspect]
     Active Substance: RIVASTIGMINE
     Indication: DEMENTIA
     Dosage: 1 PATCH
     Route: 062
     Dates: start: 20140709, end: 20150304
  11. MAGNESIUM OXIDE. [Concomitant]
     Active Substance: MAGNESIUM OXIDE
  12. COLACE [Concomitant]
     Active Substance: DOCUSATE SODIUM
  13. NAMENDA XR [Concomitant]
     Active Substance: MEMANTINE HYDROCHLORIDE
  14. DETROL LA [Concomitant]
     Active Substance: TOLTERODINE TARTRATE
  15. CATAPRES [Concomitant]
     Active Substance: CLONIDINE HYDROCHLORIDE

REACTIONS (2)
  - Unresponsive to stimuli [None]
  - Bradycardia [None]

NARRATIVE: CASE EVENT DATE: 20150304
